FAERS Safety Report 8820086 (Version 1)
Quarter: 2012Q4

REPORT INFORMATION
  Report Type: 
  Country: US (occurrence: US)
  Receive Date: 20121002
  Receipt Date: 20121002
  Transmission Date: 20130627
  Serious: Yes (Death)
  Sender: FDA-Public Use
  Company Number: PHEH2012US019066

PATIENT
  Sex: Female

DRUGS (15)
  1. RECLAST [Suspect]
     Indication: OSTEOPOROSIS POSTMENOPAUSAL
     Dosage: 5 mg, annual
     Route: 042
     Dates: start: 20110524
  2. VENTOLIN [Concomitant]
     Dosage: 2 puffs every 4 hours
  3. ALPRAZOLAM [Concomitant]
     Dosage: 1 or 2 tablets prn
     Route: 048
  4. ATENOLOL [Concomitant]
     Dosage: 0.5 DF, BID
     Route: 048
  5. WELLBUTRIN SR [Concomitant]
     Dosage: 1 DF, UNK
     Route: 048
  6. CALCIUM CARBONATE [Concomitant]
     Dosage: 1 DF, BID
     Route: 048
  7. CIPROFLOXACIN [Concomitant]
     Dosage: 1 DF, BID
     Route: 048
  8. CLINDAMYCIN HYDROCHLORIDE [Concomitant]
     Dosage: 2 DF, one hour prior to procedure
     Route: 048
     Dates: start: 20110518
  9. FLEXERIL [Concomitant]
     Dosage: 0.5-1 tablet 3 times daily
     Route: 048
  10. ADVAIR DISKUS [Concomitant]
  11. LORTAB [Concomitant]
     Dosage: 1 DF, QID
     Route: 048
  12. HYDROXYZINE HYDROCHLORIDE [Concomitant]
     Dosage: 1 or 2 tablets every 8 hours
  13. CHOLESTEROL FIGHTER [Concomitant]
     Dosage: 1 DF, BID
     Route: 048
  14. MULTIVITAMINS [Concomitant]
     Dosage: 1 DF, UNK
     Route: 048
  15. PRILOSEC [Concomitant]
     Dosage: 1 DF, UNK
     Route: 048

REACTIONS (5)
  - Death [Fatal]
  - White blood cell count decreased [Unknown]
  - Red blood cell count decreased [Unknown]
  - Haemoglobin decreased [Unknown]
  - Glomerular filtration rate decreased [Unknown]
